FAERS Safety Report 8988061 (Version 1)
Quarter: 2012Q4

REPORT INFORMATION
  Report Type: 
  Country: CN (occurrence: CN)
  Receive Date: 20121227
  Receipt Date: 20121227
  Transmission Date: 20130627
  Serious: Yes (Hospitalization)
  Sender: FDA-Public Use
  Company Number: CN-ROCHE-1174233

PATIENT
  Age: 78 Year
  Sex: Female
  Weight: 65 kg

DRUGS (5)
  1. AVASTIN [Suspect]
     Indication: COLON CANCER
     Route: 041
     Dates: start: 201003
  2. AVASTIN [Suspect]
     Route: 041
  3. AVASTIN [Suspect]
     Route: 041
     Dates: end: 201207
  4. AVASTIN [Suspect]
     Route: 041
     Dates: start: 201210
  5. IRINOTECAN [Concomitant]
     Indication: COLON CANCER
     Route: 065
     Dates: start: 201003

REACTIONS (6)
  - Oedema peripheral [Recovering/Resolving]
  - Pain in extremity [Recovering/Resolving]
  - Abdominal pain [Recovering/Resolving]
  - Metastases to liver [Not Recovered/Not Resolved]
  - Neoplasm malignant [Recovering/Resolving]
  - Diarrhoea [Recovered/Resolved]
